FAERS Safety Report 23701412 (Version 3)
Quarter: 2024Q2

REPORT INFORMATION
  Report Type: Report from Study
  Country: US (occurrence: US)
  Receive Date: 20240403
  Receipt Date: 20240510
  Transmission Date: 20240715
  Serious: Yes (Hospitalization)
  Sender: FDA-Public Use
  Company Number: US-ULTRAGENYX PHARMACEUTICAL INC.-US-UGX-24-00297

PATIENT
  Age: 16 Year
  Sex: Male
  Weight: 113.9 kg

DRUGS (11)
  1. DOJOLVI [Suspect]
     Active Substance: TRIHEPTANOIN
     Indication: Fatty acid oxidation disorder
     Dosage: 12 MILLILITER, QID
     Route: 048
     Dates: start: 20240202
  2. DOJOLVI [Suspect]
     Active Substance: TRIHEPTANOIN
     Dosage: 4 MILLILITER, BID
     Dates: start: 20240207
  3. DOJOLVI [Suspect]
     Active Substance: TRIHEPTANOIN
     Dosage: 4 MILLILITER, TID
     Dates: start: 20240209
  4. DOJOLVI [Suspect]
     Active Substance: TRIHEPTANOIN
     Dosage: 4 MILLILITER, BID
  5. DOJOLVI [Suspect]
     Active Substance: TRIHEPTANOIN
     Dosage: 8 MILLILITER, QID (MIX 8 ML AS DIRECTED FOUR TIMES DAILY FOR 5 DAYS AND INCREASE BY 1 ML PER DOSE FO
     Route: 048
  6. RAVICTI [Suspect]
     Active Substance: GLYCEROL PHENYLBUTYRATE
     Indication: Urea cycle disorder
     Dosage: 5.5 MILLILITER, TID (WITH MEALS) (1.1 GRAM/ML 25 ML BOTTLE)
     Route: 048
     Dates: start: 20240212
  7. RAVICTI [Suspect]
     Active Substance: GLYCEROL PHENYLBUTYRATE
     Dosage: 6 MILLILITER, TID
  8. RAVICTI [Suspect]
     Active Substance: GLYCEROL PHENYLBUTYRATE
     Dosage: 8 MILLILITER, TID
  9. RAVICTI [Suspect]
     Active Substance: GLYCEROL PHENYLBUTYRATE
     Dosage: 5 MILLILITER, TID
     Route: 065
  10. ZYRTEC [Concomitant]
     Active Substance: CETIRIZINE HYDROCHLORIDE
     Indication: Seasonal allergy
     Dosage: 10 MILLIGRAM
     Route: 048
  11. VITAMIN D3 [Concomitant]
     Active Substance: CHOLECALCIFEROL
     Indication: Product used for unknown indication
     Dosage: 50 MICROGRAM

REACTIONS (18)
  - Influenza [Recovering/Resolving]
  - Respiratory syncytial virus infection [Recovering/Resolving]
  - Pneumonia [Recovering/Resolving]
  - Vomiting [Recovered/Resolved]
  - Nausea [Recovered/Resolved]
  - Hospitalisation [Unknown]
  - Speech disorder [Recovering/Resolving]
  - Rehabilitation therapy [Recovered/Resolved]
  - Cough [Recovering/Resolving]
  - Weight decreased [Recovering/Resolving]
  - Feeding disorder [Unknown]
  - Faeces soft [Recovered/Resolved]
  - Flatulence [Recovered/Resolved]
  - Vitamin D decreased [Recovered/Resolved]
  - Abdominal discomfort [Unknown]
  - Abdominal pain upper [Recovered/Resolved]
  - Product use issue [Unknown]
  - Product dose omission issue [Unknown]

NARRATIVE: CASE EVENT DATE: 20240210
